FAERS Safety Report 19705283 (Version 1)
Quarter: 2021Q3

REPORT INFORMATION
  Report Type: Spontaneous
  Country: US (occurrence: US)
  Receive Date: 20210816
  Receipt Date: 20210816
  Transmission Date: 20211014
  Serious: Yes (Life-Threatening)
  Sender: FDA-Public Use
  Company Number: None

PATIENT
  Age: 87 Year
  Sex: Female
  Weight: 66.5 kg

DRUGS (1)
  1. PROTAMINE SULFATE 50 MG/5ML FRESENIUS KABI USA, UC [Suspect]
     Active Substance: PROTAMINE SULFATE
     Indication: ELECTIVE SURGERY
     Dosage: ?          OTHER FREQUENCY:ONCE;?
     Route: 042
     Dates: start: 20210813, end: 20210813

REACTIONS (4)
  - Cardio-respiratory arrest [None]
  - Arrhythmia [None]
  - Pulse absent [None]
  - Sinus bradycardia [None]

NARRATIVE: CASE EVENT DATE: 20210813
